FAERS Safety Report 5926321-9 (Version None)
Quarter: 2008Q4

REPORT INFORMATION
  Report Type: 
  Country: None (occurrence: None)
  Receive Date: 20081017
  Receipt Date: 20081006
  Transmission Date: 20090506
  Serious: Yes (Other)
  Sender: FDA-Public Use
  Company Number: 2008-03143

PATIENT
  Age: 58 Year
  Sex: Female
  Weight: 61 kg

DRUGS (7)
  1. VELCADE [Suspect]
     Indication: MULTIPLE MYELOMA
     Dosage: 2.1 MG/M2, INTRAVENOUS
     Route: 042
     Dates: start: 20071002, end: 20071122
  2. DEXAMETHASONE [Suspect]
     Indication: MULTIPLE MYELOMA
     Dosage: 8 MG, INTRAVENOUS; 20 MG, INTRAVENOUS
     Route: 042
     Dates: start: 20071002, end: 20071026
  3. DEXAMETHASONE [Suspect]
     Indication: MULTIPLE MYELOMA
     Dosage: 8 MG, INTRAVENOUS; 20 MG, INTRAVENOUS
     Route: 042
     Dates: start: 20071002, end: 20071026
  4. BAKTAR(SULFAMETHOXAZOLE, TRIMETHOPRIM) TABLET [Suspect]
     Indication: PROPHYLAXIS
     Dosage: 2 DF, ORAL
     Route: 048
     Dates: start: 20070823, end: 20071203
  5. RED BLOOD CELLS [Concomitant]
  6. ZOVIRAX [Concomitant]
  7. VALTREX [Concomitant]

REACTIONS (7)
  - ANAEMIA [None]
  - APHTHOUS STOMATITIS [None]
  - ERYTHEMA MULTIFORME [None]
  - HERPES SIMPLEX [None]
  - ORAL HERPES [None]
  - PLATELET COUNT DECREASED [None]
  - WHITE BLOOD CELL COUNT DECREASED [None]
